FAERS Safety Report 4455382-1 (Version None)
Quarter: 2004Q3

REPORT INFORMATION
  Report Type: 
  Country: None (occurrence: None)
  Receive Date: 20040825
  Receipt Date: 20040726
  Transmission Date: 20050211
  Serious: No
  Sender: FDA-Public Use
  Company Number: 208050

PATIENT
  Age: 77 Year
  Sex: Female
  Weight: 65 kg

DRUGS (3)
  1. RAPTIVA [Suspect]
     Indication: PSORIASIS
     Dosage: 0.7 ML,1/WEEK,SUBCUTANEOUS
     Route: 058
     Dates: start: 20040202
  2. ASPIRIN [Concomitant]
  3. ALPHAGAN [Concomitant]

REACTIONS (2)
  - ALOPECIA [None]
  - ONYCHOMADESIS [None]
